FAERS Safety Report 8194119-X (Version None)
Quarter: 2012Q1

REPORT INFORMATION
  Report Type: 
  Country: None (occurrence: None)
  Receive Date: 20120308
  Receipt Date: 20120306
  Transmission Date: 20120608
  Serious: Yes (Death, Life-Threatening, Other)
  Sender: FDA-Public Use
  Company Number: US-ROXANE LABORATORIES, INC.-2011-RO-01200RO

PATIENT
  Age: 68 Year
  Sex: Female
  Weight: 88 kg

DRUGS (15)
  1. CRIZOTINIB [Suspect]
     Indication: NON-SMALL CELL LUNG CANCER
     Dosage: 500 MG
     Route: 048
     Dates: start: 20110726, end: 20110816
  2. OXYCONTIN [Concomitant]
     Indication: BACK PAIN
     Dosage: 40 MG
     Route: 048
     Dates: start: 20110721
  3. CALCIUM [Concomitant]
     Dosage: 1000 MG
     Route: 048
  4. CLONAZEPAM [Concomitant]
     Dosage: 0.5 MG
     Route: 048
     Dates: start: 20110807
  5. ATORVASTATIN [Concomitant]
     Dosage: 10 MG
     Route: 048
  6. COLACE [Concomitant]
     Dosage: 100 MG
     Route: 048
  7. OMEPRAZOLE [Concomitant]
     Dosage: 20 MG
     Route: 048
  8. PROCHLORPERAZINE [Concomitant]
     Dosage: 10 MG
     Route: 048
  9. DEXAMETHASONE [Suspect]
     Dosage: 8 MG
     Route: 048
     Dates: start: 20110705
  10. VICOPROFEN [Concomitant]
     Route: 048
  11. ONDANSETRON [Concomitant]
     Route: 048
  12. FOLIC ACID [Concomitant]
     Dosage: 1 MG
     Route: 048
  13. LEVOTHYROXINE SODIUM [Concomitant]
     Dosage: 100 MG
     Route: 048
  14. ALBUTEROL [Concomitant]
     Route: 055
     Dates: start: 20110807
  15. LACTULOSE [Concomitant]
     Route: 048
     Dates: start: 20110705

REACTIONS (7)
  - PNEUMONIA [None]
  - HYPOTHYROIDISM [None]
  - CANDIDIASIS [None]
  - CONSTIPATION [None]
  - MULTI-ORGAN FAILURE [None]
  - GASTROOESOPHAGEAL REFLUX DISEASE [None]
  - URINARY TRACT INFECTION [None]
